FAERS Safety Report 21371018 (Version 1)
Quarter: 2022Q3

REPORT INFORMATION
  Report Type: Spontaneous
  Country: AR (occurrence: AR)
  Receive Date: 20220923
  Receipt Date: 20220923
  Transmission Date: 20221027
  Serious: Yes (Other)
  Sender: FDA-Public Use
  Company Number: AR-FreseniusKabi-FK202212745

PATIENT
  Age: 79 Year
  Sex: Female
  Weight: 44 kg

DRUGS (5)
  1. SMOFLIPID [Suspect]
     Active Substance: FISH OIL\MEDIUM-CHAIN TRIGLYCERIDES\OLIVE OIL\SOYBEAN OIL
     Indication: Malnutrition
     Dosage: 4 DAYS A WEEK
     Route: 042
     Dates: start: 202204, end: 20220914
  2. PANCREATINA [Concomitant]
     Indication: Malabsorption
     Dosage: CHRONIC TREATMENT
     Route: 048
  3. TRIMETOPRIME SULFAMETHOXASOL [Concomitant]
     Indication: Urinary tract infection
     Dosage: I TABLET /12 H
     Route: 048
     Dates: start: 20220829, end: 20220915
  4. Corinex [Concomitant]
     Indication: Chronic disease
     Dosage: CHRONIC TREATMENT
     Route: 048
  5. ESOMEPRAZOLE [Concomitant]
     Active Substance: ESOMEPRAZOLE
     Indication: Antacid therapy
     Dosage: CHRONIC TREATMENT
     Route: 048

REACTIONS (1)
  - Erythema [Recovering/Resolving]

NARRATIVE: CASE EVENT DATE: 20220915
